FAERS Safety Report 4523021-7 (Version None)
Quarter: 2004Q4

REPORT INFORMATION
  Report Type: 
  Country: None (occurrence: None)
  Receive Date: 20041207
  Receipt Date: 20041207
  Transmission Date: 20050328
  Serious: No
  Sender: FDA-Public Use
  Company Number: None

PATIENT
  Sex: Male
  Weight: 97.977 kg

DRUGS (5)
  1. CLOZAPINE [Suspect]
     Indication: SCHIZOPHRENIA, PARANOID TYPE
     Dosage: 100 MG HS ORAL
     Route: 048
     Dates: start: 20041022, end: 20041102
  2. DIVAPROEX ER [Concomitant]
  3. LEVOTHYROXINE SODIUM [Concomitant]
  4. PERPHENAZINE [Concomitant]
  5. OLANZAPINE [Concomitant]

REACTIONS (1)
  - NEUTROPHIL COUNT DECREASED [None]
